FAERS Safety Report 14284422 (Version 2)
Quarter: 2017Q4

REPORT INFORMATION
  Report Type: Report from Study
  Country: None (occurrence: US)
  Receive Date: 20171214
  Receipt Date: 20171227
  Transmission Date: 20180321
  Serious: Yes (Hospitalization, Disabling)
  Sender: FDA-Public Use
  Company Number: US-ABBVIE-17K-163-2188632-00

PATIENT
  Age: 73 Year
  Sex: Female
  Weight: 98.52 kg

DRUGS (1)
  1. HUMIRA [Suspect]
     Active Substance: ADALIMUMAB
     Indication: RHEUMATOID ARTHRITIS
     Route: 058
     Dates: start: 201705, end: 20170922

REACTIONS (2)
  - Lower respiratory tract infection fungal [Recovering/Resolving]
  - Gait inability [Recovered/Resolved]

NARRATIVE: CASE EVENT DATE: 201709
